FAERS Safety Report 9460684 (Version 2)
Quarter: 2014Q2

REPORT INFORMATION
  Report Type: Report from Study
  Country: JP (occurrence: JP)
  Receive Date: 20130815
  Receipt Date: 20140402
  Transmission Date: 20141212
  Serious: Yes (Hospitalization, Disabling)
  Sender: FDA-Public Use
  Company Number: JP-B.I. PHARMACEUTICALS,INC./RIDGEFIELD-2013-BI-24309NB

PATIENT
  Age: 85 Year
  Sex: Female
  Weight: 60 kg

DRUGS (5)
  1. MIRAPEX LA [Suspect]
     Indication: PARKINSON^S DISEASE
     Dosage: 0.1875 MG
     Route: 048
     Dates: start: 20120928
  2. MIRAPEX LA [Suspect]
     Dosage: 0.375 MG
     Route: 048
     Dates: start: 20120329, end: 20130522
  3. BAYASPIRIN [Suspect]
     Indication: PRODUCT USED FOR UNKNOWN INDICATION
     Dosage: 100 MG
     Route: 048
     Dates: end: 20130522
  4. DOPACOL / LEVODOPA CARBIDOPA HYDRATE [Concomitant]
     Indication: PARKINSON^S DISEASE
     Dosage: 450 MG
     Route: 048
     Dates: end: 20130522
  5. EVISTA/ RALOXIFENE HYDROCHLORIDE [Concomitant]
     Dosage: 60 MG
     Route: 048
     Dates: end: 20130522

REACTIONS (1)
  - Cerebral haemorrhage [Recovered/Resolved with Sequelae]
